FAERS Safety Report 12290635 (Version 1)
Quarter: 2016Q2

REPORT INFORMATION
  Report Type: Spontaneous
  Country: FR (occurrence: FR)
  Receive Date: 20160421
  Receipt Date: 20160421
  Transmission Date: 20160815
  Serious: Yes (Other)
  Sender: FDA-Public Use
  Company Number: FR-SA-2016SA074380

PATIENT
  Age: 84 Year
  Sex: Female
  Weight: 51 kg

DRUGS (8)
  1. CO-APROVEL [Suspect]
     Active Substance: HYDROCHLOROTHIAZIDE\IRBESARTAN
     Indication: HYPERTENSION
     Route: 048
     Dates: end: 201601
  2. ALEPSAL [Concomitant]
     Active Substance: CAFFEINE\PHENOBARBITAL
  3. INEXIUM [Concomitant]
     Active Substance: ESOMEPRAZOLE
  4. KEPPRA [Concomitant]
     Active Substance: LEVETIRACETAM
  5. LASILIX [Suspect]
     Active Substance: FUROSEMIDE
     Indication: HYPERTENSION
     Route: 048
     Dates: end: 201601
  6. LEVOTHYROX [Concomitant]
     Active Substance: LEVOTHYROXINE
  7. URBANYL [Concomitant]
     Active Substance: CLOBAZAM
  8. DI-HYDAN [Concomitant]
     Active Substance: PHENYTOIN
     Dosage: EVEN DAYS 50 MG IN THE MORNING AND 100 MG IN THE EVENING, EVEN DAYS 100 MG MORNING AND EVENING

REACTIONS (2)
  - Dehydration [Recovered/Resolved]
  - Acute prerenal failure [Recovered/Resolved]

NARRATIVE: CASE EVENT DATE: 201601
